FAERS Safety Report 15156976 (Version 1)
Quarter: 2018Q3

REPORT INFORMATION
  Report Type: Spontaneous
  Country: US (occurrence: US)
  Receive Date: 20180718
  Receipt Date: 20180718
  Transmission Date: 20181010
  Serious: No
  Sender: FDA-Public Use
  Company Number: US-TEVA-2018-US-926650

PATIENT

DRUGS (1)
  1. VECURONIUM BROMIDE. [Suspect]
     Active Substance: VECURONIUM BROMIDE
     Dates: start: 20180710

REACTIONS (1)
  - Drug ineffective [Unknown]
